FAERS Safety Report 15202428 (Version 1)
Quarter: 2018Q3

REPORT INFORMATION
  Report Type: Report from Study
  Country: DE (occurrence: DE)
  Receive Date: 20180726
  Receipt Date: 20180726
  Transmission Date: 20181010
  Serious: Yes (Other)
  Sender: FDA-Public Use
  Company Number: DE-MYLANLABS-2018M1054870

PATIENT
  Sex: Female

DRUGS (4)
  1. DOXORUBICIN [Suspect]
     Active Substance: DOXORUBICIN
     Indication: NEOPLASM MALIGNANT
     Dosage: EVERY 4?6 WEEKS, THREE CYCLES
     Route: 033
  2. SODIUM CHLORIDE. [Concomitant]
     Active Substance: SODIUM CHLORIDE
     Dosage: WITH CISPLATIN; EVERY 4?6 WEEKS, THREE CYCLES
     Route: 033
  3. SODIUM CHLORIDE. [Concomitant]
     Active Substance: SODIUM CHLORIDE
     Indication: NEOPLASM MALIGNANT
     Dosage: WITH DOXORUBICIN; EVERY 4?6 WEEKS, THREE CYCLES
     Route: 033
  4. CISPLATIN. [Suspect]
     Active Substance: CISPLATIN
     Indication: NEOPLASM MALIGNANT
     Dosage: EVERY 4?6 WEEKS, THREE CYCLES
     Route: 033

REACTIONS (1)
  - Large intestine perforation [Recovered/Resolved]
